FAERS Safety Report 18847355 (Version 1)
Quarter: 2021Q1

REPORT INFORMATION
  Report Type: Spontaneous
  Country: IT (occurrence: IT)
  Receive Date: 20210204
  Receipt Date: 20210204
  Transmission Date: 20210419
  Serious: Yes (Other)
  Sender: FDA-Public Use
  Company Number: IT-CELGENEUS-ITA-20201207117

PATIENT
  Age: 51 Year
  Sex: Female

DRUGS (1)
  1. VIDAZA [Suspect]
     Active Substance: AZACITIDINE
     Indication: ACUTE LEUKAEMIA
     Route: 065

REACTIONS (2)
  - Haematotoxicity [Recovering/Resolving]
  - Leukopenia [Recovering/Resolving]
